FAERS Safety Report 10266141 (Version 2)
Quarter: 2014Q2

REPORT INFORMATION
  Report Type: Report from Study
  Country: CA (occurrence: CA)
  Receive Date: 20140627
  Receipt Date: 20140627
  Transmission Date: 20141212
  Serious: Yes (Other)
  Sender: FDA-Public Use
  Company Number: CA-ABBVIE-14P-028-1243727-00

PATIENT
  Sex: Female
  Weight: 84.9 kg

DRUGS (3)
  1. HUMIRA [Suspect]
     Indication: RHEUMATOID ARTHRITIS
     Route: 058
     Dates: start: 2007
  2. HUMIRA [Suspect]
     Dosage: EVERY 15 TO 20 DAYS
     Route: 058
  3. METHOTREXATE [Concomitant]
     Indication: PRODUCT USED FOR UNKNOWN INDICATION
     Route: 058
     Dates: start: 2004

REACTIONS (3)
  - Urinary incontinence [Unknown]
  - Bladder neck suspension [Unknown]
  - Cystitis [Not Recovered/Not Resolved]
